FAERS Safety Report 13476080 (Version 2)
Quarter: 2018Q2

REPORT INFORMATION
  Report Type: Spontaneous
  Country: US (occurrence: US)
  Receive Date: 20170425
  Receipt Date: 20180413
  Transmission Date: 20180711
  Serious: Yes (Life-Threatening, Hospitalization, Other)
  Sender: FDA-Public Use
  Company Number: US-STRIDES ARCOLAB LIMITED-2016SP002975

PATIENT

DRUGS (9)
  1. PROPOFOL. [Suspect]
     Active Substance: PROPOFOL
     Indication: GENERAL ANAESTHESIA
     Dosage: UNK
     Route: 013
  2. VANCOMYCIN [Suspect]
     Active Substance: VANCOMYCIN
     Indication: PRODUCT USED FOR UNKNOWN INDICATION
     Dosage: 12.5 MG/MIN
     Route: 042
  3. LIDOCAINE. [Suspect]
     Active Substance: LIDOCAINE
     Indication: GENERAL ANAESTHESIA
     Dosage: UNK
     Route: 013
  4. HYDROCHLOROTHIAZIDE. [Concomitant]
     Active Substance: HYDROCHLOROTHIAZIDE
     Indication: HYPERTENSION
     Dosage: UNKNOWN
     Route: 065
  5. BUPIVACAINE. [Concomitant]
     Active Substance: BUPIVACAINE
     Indication: GENERAL ANAESTHESIA
     Dosage: 30 ML
     Route: 065
  6. SUCCINYLCHOLINE [Suspect]
     Active Substance: SUCCINYLCHOLINE
     Indication: GENERAL ANAESTHESIA
     Dosage: UNKNOWN
     Route: 013
  7. METOPROLOL. [Concomitant]
     Active Substance: METOPROLOL
     Indication: HYPERTENSION
     Dosage: UNK
     Route: 065
  8. DILTIAZEM. [Concomitant]
     Active Substance: DILTIAZEM
     Indication: HYPERTENSION
     Dosage: UNKNOWN
     Route: 065
  9. FENTANYL. [Suspect]
     Active Substance: FENTANYL
     Indication: GENERAL ANAESTHESIA
     Dosage: UNK
     Route: 013

REACTIONS (10)
  - Ventricular hypokinesia [Unknown]
  - Hypotension [Unknown]
  - Hypertrophic cardiomyopathy [Unknown]
  - Acute myocardial infarction [Unknown]
  - Condition aggravated [Unknown]
  - Left ventricle outflow tract obstruction [Unknown]
  - Mitral valve incompetence [Unknown]
  - Anaphylactic reaction [Unknown]
  - Unmasking of previously unidentified disease [Unknown]
  - Cardiac arrest [Unknown]

NARRATIVE: CASE EVENT DATE: 20151003
